FAERS Safety Report 6653118-7 (Version None)
Quarter: 2010Q1

REPORT INFORMATION
  Report Type: 
  Country: None (occurrence: None)
  Receive Date: 20100326
  Receipt Date: 20100319
  Transmission Date: 20100710
  Serious: No
  Sender: FDA-Public Use
  Company Number: US-CEPHALON-2010001621

PATIENT
  Sex: Female
  Weight: 82 kg

DRUGS (10)
  1. FENTORA [Suspect]
     Indication: OVARIAN CANCER
     Route: 002
     Dates: start: 20100101, end: 20100201
  2. FENTORA [Suspect]
     Indication: CANCER PAIN
     Route: 002
     Dates: start: 20100201
  3. ZANAFLEX [Concomitant]
     Indication: MUSCLE SPASMS
     Route: 048
  4. CELEXA [Concomitant]
     Indication: DEPRESSION
  5. TOPAMAX [Concomitant]
     Indication: CONVULSION
  6. IMURAN [Concomitant]
     Indication: SYSTEMIC LUPUS ERYTHEMATOSUS
  7. PLAQUENIL [Concomitant]
     Indication: SYSTEMIC LUPUS ERYTHEMATOSUS
  8. PREDNISONE TAB [Concomitant]
     Indication: SYSTEMIC LUPUS ERYTHEMATOSUS
  9. OXYCONTIN [Concomitant]
  10. DILAUDID [Concomitant]

REACTIONS (3)
  - APPLICATION SITE IRRITATION [None]
  - DRUG PRESCRIBING ERROR [None]
  - DRUG TOLERANCE [None]
